FAERS Safety Report 8775714 (Version 1)
Quarter: 2012Q4

REPORT INFORMATION
  Report Type: 
  Country: GB (occurrence: GB)
  Receive Date: 20120910
  Receipt Date: 20120910
  Transmission Date: 20130627
  Serious: Yes (Disabling, Other)
  Sender: FDA-Public Use
  Company Number: GB-RANBAXY-2012R1-59579

PATIENT
  Age: 32 Year
  Sex: Female
  Weight: 52 kg

DRUGS (2)
  1. FLUCONAZOLE [Suspect]
     Indication: CANDIDIASIS
     Dosage: 50 mg, qd
     Route: 048
     Dates: start: 20120801, end: 20120807
  2. FLUOXETINE [Concomitant]
     Indication: PRODUCT USED FOR UNKNOWN INDICATION
     Dosage: UNK
     Route: 065

REACTIONS (2)
  - Chest pain [Recovered/Resolved]
  - Oesophageal spasm [Recovered/Resolved]
